FAERS Safety Report 8446767 (Version 2)
Quarter: 2012Q4

REPORT INFORMATION
  Report Type: Spontaneous
  Country: CA (occurrence: None)
  Receive Date: 20120221
  Receipt Date: 20120913
  Transmission Date: 20130627
  Serious: No
  Sender: FDA-Public Use
  Company Number: AECAN201100370

PATIENT
  Age: 70 Year
  Sex: Male
  Weight: 182.3 kg

DRUGS (10)
  1. GAMUNEX [Suspect]
     Indication: IDIOPATHIC THROMBOCYTOPENIC PURPURA
     Dosage: 30 GM;QD;IV
     Route: 042
     Dates: start: 20060609
  2. APRESOLINE HYDROCHLORIDE [Concomitant]
  3. NOVOLIN [Concomitant]
  4. AVELOX [Concomitant]
  5. COLACE [Concomitant]
  6. DIAMINE [Concomitant]
  7. LASIX [Concomitant]
  8. NEURONTIN [Concomitant]
  9. NORVASC [Concomitant]
  10. TEVETEN [Concomitant]

REACTIONS (2)
  - Hypertension [None]
  - Pneumonia [None]
